FAERS Safety Report 25716496 (Version 1)
Quarter: 2025Q3

REPORT INFORMATION
  Report Type: Spontaneous
  Country: US (occurrence: US)
  Receive Date: 20250822
  Receipt Date: 20250822
  Transmission Date: 20251020
  Serious: No
  Sender: MAYNE
  Company Number: US-GALDERMA-US2024015587

PATIENT

DRUGS (1)
  1. TWYNEO [Suspect]
     Active Substance: BENZOYL PEROXIDE\TRETINOIN
     Indication: Acne
     Route: 061
     Dates: start: 202410

REACTIONS (3)
  - Erythema [Recovered/Resolved]
  - Product colour issue [Recovered/Resolved]
  - Poor quality product administered [Not Recovered/Not Resolved]
